FAERS Safety Report 25053977 (Version 2)
Quarter: 2025Q1

REPORT INFORMATION
  Report Type: Spontaneous
  Country: US (occurrence: US)
  Receive Date: 20250307
  Receipt Date: 20250322
  Transmission Date: 20250408
  Serious: Yes (Hospitalization)
  Sender: SANOFI AVENTIS
  Company Number: US-SA-2025SA065565

PATIENT
  Age: 15 Year
  Sex: Male

DRUGS (2)
  1. DUPIXENT [Suspect]
     Active Substance: DUPILUMAB
     Indication: Asthma
     Route: 058
     Dates: start: 20240604, end: 20240604
  2. DUPIXENT [Suspect]
     Active Substance: DUPILUMAB
     Dosage: 300 MG, QOW
     Route: 058
     Dates: start: 202406

REACTIONS (8)
  - Hospitalisation [Unknown]
  - Ocular hyperaemia [Recovering/Resolving]
  - Hypersensitivity [Unknown]
  - Lacrimation increased [Unknown]
  - Eye pruritus [Recovering/Resolving]
  - Asthma [Unknown]
  - Wheezing [Recovering/Resolving]
  - Product dose omission issue [Unknown]

NARRATIVE: CASE EVENT DATE: 20250201
